FAERS Safety Report 11556196 (Version 2)
Quarter: 2015Q3

REPORT INFORMATION
  Report Type: Report from Study
  Country: VE (occurrence: VE)
  Receive Date: 20150925
  Receipt Date: 20150925
  Transmission Date: 20151125
  Serious: Yes (Other)
  Sender: FDA-Public Use
  Company Number: PHHY2015VE111229

PATIENT
  Sex: Female

DRUGS (7)
  1. OMEPRAZOLE. [Concomitant]
     Active Substance: OMEPRAZOLE
     Indication: PROPHYLAXIS
     Dosage: TAKE REST AFTER 1 MONTH (8 DAYS WITHOUT TAKING IT)
     Route: 065
  2. ACLASTA [Suspect]
     Active Substance: ZOLEDRONIC ACID
     Indication: OSTEOPOROSIS
     Dosage: 5 MG/100 ML, Q12MO
     Route: 042
     Dates: start: 20131206
  3. MILAX [Concomitant]
     Indication: CONSTIPATION
     Dosage: UNK UNK, QD
     Route: 065
     Dates: start: 2009
  4. CALCIUM [Concomitant]
     Active Substance: CALCIUM
     Indication: PRODUCT USED FOR UNKNOWN INDICATION
     Dosage: UNK UNK, QD
     Route: 065
     Dates: start: 2012, end: 201507
  5. TECTA [Concomitant]
     Active Substance: PANTOPRAZOLE MAGNESIUM
     Indication: PROPHYLAXIS
     Dosage: TAKE REST AFTER 1 MONTH (8 DAYS WITHOUT TAKING IT)
     Route: 065
  6. EUTHYROX [Concomitant]
     Active Substance: LEVOTHYROXINE SODIUM
     Indication: THYROID DISORDER
     Dosage: 75 MG, QD
     Route: 065
  7. GLUCOSAMINE [Concomitant]
     Active Substance: GLUCOSAMINE
     Indication: MINERAL SUPPLEMENTATION
     Dosage: UNK UNK, QD
     Route: 065
     Dates: start: 2012

REACTIONS (4)
  - Limb discomfort [Not Recovered/Not Resolved]
  - Spinal cord compression [Unknown]
  - Spinal disorder [Unknown]
  - Disease progression [Unknown]
